FAERS Safety Report 4996438-4 (Version None)
Quarter: 2006Q2

REPORT INFORMATION
  Report Type: 
  Country: None (occurrence: None)
  Receive Date: 20060505
  Receipt Date: 20060426
  Transmission Date: 20061013
  Serious: Yes (Hospitalization)
  Sender: FDA-Public Use
  Company Number: 2006-03-1548

PATIENT
  Age: 59 Year
  Sex: Male
  Weight: 70 kg

DRUGS (7)
  1. PEG-INTRON [Suspect]
     Indication: HEPATITIS C
     Dosage: 100-80 UG QW SUBCUTANEOUS
     Route: 058
     Dates: start: 20060217, end: 20060317
  2. REBETOL [Suspect]
     Indication: HEPATITIS C
     Dosage: 800-600 MG ORAL
     Route: 048
     Dates: start: 20060217, end: 20060320
  3. BLOPRESS (CANDESARTAN CILEXETIL) [Concomitant]
  4. REBAMIPIDE [Concomitant]
  5. LOXONIN [Concomitant]
  6. NAUZELIN [Concomitant]
  7. DEPAS [Concomitant]

REACTIONS (5)
  - BACK PAIN [None]
  - INFECTION [None]
  - MUSCLE ABSCESS [None]
  - PLATELET COUNT DECREASED [None]
  - PYREXIA [None]
